FAERS Safety Report 16681282 (Version 2)
Quarter: 2019Q3

REPORT INFORMATION
  Report Type: Spontaneous
  Country: US (occurrence: US)
  Receive Date: 20190808
  Receipt Date: 20190823
  Transmission Date: 20191004
  Serious: No
  Sender: FDA-Public Use
  Company Number: US-LUPIN PHARMACEUTICALS INC.-2019-04842

PATIENT
  Sex: Male
  Weight: 61.22 kg

DRUGS (3)
  1. BUPROPION HYDROCHLORIDE EXTENDED-RELEASE TABLETS [Suspect]
     Active Substance: BUPROPION HYDROCHLORIDE
     Indication: PRODUCT USED FOR UNKNOWN INDICATION
     Dosage: 300 MILLIGRAM, QD
     Route: 048
  2. BUPROPION HYDROCHLORIDE EXTENDED-RELEASE TABLETS [Suspect]
     Active Substance: BUPROPION HYDROCHLORIDE
     Dosage: 300 MILLIGRAM, QD
     Route: 048
     Dates: start: 20190722
  3. BUPROPION HYDROCHLORIDE EXTENDED-RELEASE TABLETS [Suspect]
     Active Substance: BUPROPION HYDROCHLORIDE
     Dosage: 300 MILLIGRAM, QD
     Route: 048
     Dates: start: 20190727

REACTIONS (10)
  - Product storage error [Unknown]
  - Daydreaming [Recovering/Resolving]
  - Irritability [Recovering/Resolving]
  - Feeling abnormal [Recovering/Resolving]
  - Arthralgia [Recovering/Resolving]
  - Pain in jaw [Recovering/Resolving]
  - Thinking abnormal [Recovering/Resolving]
  - Disturbance in attention [Recovering/Resolving]
  - Myalgia [Recovering/Resolving]
  - Gait disturbance [Recovering/Resolving]

NARRATIVE: CASE EVENT DATE: 20190715
